FAERS Safety Report 7960764 (Version 5)
Quarter: 2014Q3

REPORT INFORMATION
  Report Type: Spontaneous
  Country: US (occurrence: US)
  Receive Date: 20110525
  Receipt Date: 20140910
  Transmission Date: 20150326
  Serious: Yes (Life-Threatening, Hospitalization, Disabling, Congenital Anomaly, Other)
  Sender: FDA-Public Use
  Company Number: US-PFIZER INC-2011105857

PATIENT
  Sex: Male
  Weight: 2.9 kg

DRUGS (34)
  1. AZITHROMYCIN [Concomitant]
     Active Substance: AZITHROMYCIN ANHYDROUS
     Indication: PNEUMONIA
     Dosage: UNK
     Route: 064
     Dates: start: 20060105
  2. HYDROXYZINE PAMOATE. [Concomitant]
     Active Substance: HYDROXYZINE PAMOATE
     Dosage: UNK
     Route: 064
  3. AMOXICILLIN. [Concomitant]
     Active Substance: AMOXICILLIN
     Dosage: UNK
     Route: 064
  4. FASTIN [Concomitant]
     Active Substance: PHENTERMINE HYDROCHLORIDE
     Dosage: UNK
     Route: 064
  5. PROZAC [Concomitant]
     Active Substance: FLUOXETINE HYDROCHLORIDE
     Dosage: UNK
     Route: 064
  6. FLUCONAZOLE. [Concomitant]
     Active Substance: FLUCONAZOLE
     Dosage: UNK
     Route: 064
  7. LORTAB [Concomitant]
     Active Substance: ACETAMINOPHEN\HYDROCODONE BITARTRATE
     Dosage: UNK
     Route: 064
  8. EFFEXOR [Suspect]
     Active Substance: VENLAFAXINE HYDROCHLORIDE
     Indication: DEPRESSION
     Dosage: UNK
     Route: 064
     Dates: start: 2003, end: 2006
  9. PROCARDIA [Concomitant]
     Active Substance: NIFEDIPINE
     Dosage: 10 MG, EVERY FOUR HOURS
  10. NIFEDIPINE. [Concomitant]
     Active Substance: NIFEDIPINE
     Dosage: UNK
     Route: 064
  11. IMODIUM A-D [Concomitant]
     Active Substance: LOPERAMIDE HYDROCHLORIDE
     Dosage: UNK
     Route: 064
  12. HYDROCODONE [Concomitant]
     Active Substance: HYDROCODONE
     Dosage: UNK
     Route: 064
  13. EFFEXOR [Suspect]
     Active Substance: VENLAFAXINE HYDROCHLORIDE
     Dosage: 75 MG, EVERY DAY
     Route: 064
     Dates: start: 20051213
  14. RESTORIL [Concomitant]
     Active Substance: TEMAZEPAM
     Dosage: UNK
     Route: 064
  15. LEVSIN [Concomitant]
     Active Substance: HYOSCYAMINE SULFATE
     Dosage: UNK
     Route: 064
  16. EFFEXOR XR [Suspect]
     Active Substance: VENLAFAXINE HYDROCHLORIDE
     Dosage: 150 MG, UNK
     Route: 064
     Dates: start: 20050617
  17. PROCARDIA [Concomitant]
     Active Substance: NIFEDIPINE
     Indication: PAIN
     Dosage: 10 OR 20 MG INITIALLY IN THE MORNING
     Route: 064
  18. EFFEXOR XR [Suspect]
     Active Substance: VENLAFAXINE HYDROCHLORIDE
     Dosage: 125 MG, EVERY DAY
     Route: 064
     Dates: start: 20050606
  19. PRENATAL VITAMINS [Concomitant]
     Active Substance: VITAMINS
     Dosage: UNK
     Route: 064
  20. RANITIDINE [Concomitant]
     Active Substance: RANITIDINE\RANITIDINE HYDROCHLORIDE
     Dosage: UNK
     Route: 064
  21. WELLBUTRIN [Concomitant]
     Active Substance: BUPROPION HYDROCHLORIDE
     Dosage: UNK
     Route: 064
  22. LEXAPRO [Concomitant]
     Active Substance: ESCITALOPRAM OXALATE
     Dosage: UNK
     Route: 064
  23. REGLAN [Concomitant]
     Active Substance: METOCLOPRAMIDE HYDROCHLORIDE
     Dosage: 10 MG, EVERY 6 PM
     Route: 064
  24. TERBUTALINE [Concomitant]
     Active Substance: TERBUTALINE
     Dosage: UNK
     Route: 064
  25. CEPHALEXIN. [Concomitant]
     Active Substance: CEPHALEXIN
     Dosage: UNK
     Route: 064
  26. FIORINAL [Concomitant]
     Active Substance: ASPIRIN\BUTALBITAL\CAFFEINE
     Indication: CLUSTER HEADACHE
     Dosage: UNK
     Route: 064
  27. FIORICET [Concomitant]
     Active Substance: ACETAMINOPHEN\BUTALBITAL\CAFFEINE
     Dosage: UNK, EVERY 4-6 PM
     Route: 064
  28. PRILOSEC [Concomitant]
     Active Substance: OMEPRAZOLE MAGNESIUM
     Dosage: UNK
     Route: 064
  29. ZYRTEC D ALLERGY AND CONGESTION [Concomitant]
     Active Substance: CETIRIZINE HYDROCHLORIDE\PSEUDOEPHEDRINE HYDROCHLORIDE
     Dosage: UNK
     Route: 064
  30. EFFEXOR XR [Suspect]
     Active Substance: VENLAFAXINE HYDROCHLORIDE
     Indication: DEPRESSION
     Dosage: 150 MG, UNK
     Route: 064
     Dates: start: 20041101
  31. VENLAFAXINE HCL [Suspect]
     Active Substance: VENLAFAXINE HYDROCHLORIDE
     Dosage: UNK
     Route: 064
     Dates: start: 2003, end: 2006
  32. DARVOCET [Concomitant]
     Active Substance: ACETAMINOPHEN\PROPOXYPHENE HYDROCHLORIDE
     Indication: PAIN
     Dosage: UNK, 1X/DAY
     Route: 064
  33. TYLENOL [Concomitant]
     Active Substance: ACETAMINOPHEN
     Indication: PAIN
     Dosage: UNK
     Route: 064
  34. PHENERGAN/CODEINE SYRUP [Concomitant]
     Dosage: UNK
     Route: 064

REACTIONS (36)
  - Viral upper respiratory tract infection [Recovered/Resolved]
  - Kawasaki^s disease [Recovering/Resolving]
  - Intraventricular haemorrhage [Unknown]
  - Sick sinus syndrome [Unknown]
  - Pneumonia viral [Not Recovered/Not Resolved]
  - Hypoxia [Not Recovered/Not Resolved]
  - Atrial tachycardia [Recovering/Resolving]
  - Angioedema [Unknown]
  - Congenital anomaly [Unknown]
  - Pneumonia [Recovering/Resolving]
  - Feeding disorder neonatal [Unknown]
  - Bronchiolitis [Recovering/Resolving]
  - Arrhythmia [Recovering/Resolving]
  - Cardiomegaly [Unknown]
  - Asthma [Unknown]
  - Conjunctivitis [Unknown]
  - Urticaria [Unknown]
  - Ductus arteriosus stenosis foetal [Recovering/Resolving]
  - Atrial septal defect [Recovering/Resolving]
  - Atelectasis [Not Recovered/Not Resolved]
  - Respiratory distress [Not Recovered/Not Resolved]
  - Pulmonary artery stenosis congenital [Not Recovered/Not Resolved]
  - Pulmonary hypertension [Unknown]
  - Tricuspid valve incompetence [Not Recovered/Not Resolved]
  - Maternal exposure timing unspecified [Unknown]
  - Anomalous pulmonary venous connection [Recovering/Resolving]
  - Lethargy [Unknown]
  - Ventricular septal defect [Recovering/Resolving]
  - Pulmonary veno-occlusive disease [Recovered/Resolved]
  - Positional plagiocephaly [Unknown]
  - Ventricular tachycardia [Recovering/Resolving]
  - Pulmonary oedema [Unknown]
  - Sleep apnoea syndrome [Unknown]
  - Diarrhoea [Recovering/Resolving]
  - Gastrooesophageal reflux disease [Recovering/Resolving]
  - Candida infection [Unknown]

NARRATIVE: CASE EVENT DATE: 200601
